FAERS Safety Report 7454898-3 (Version None)
Quarter: 2011Q2

REPORT INFORMATION
  Report Type: 
  Country: None (occurrence: None)
  Receive Date: 20110503
  Receipt Date: 20110427
  Transmission Date: 20111010
  Serious: No
  Sender: FDA-Public Use
  Company Number: HR-SANOFI-AVENTIS-2011SA026377

PATIENT
  Sex: Female

DRUGS (1)
  1. ARAVA [Suspect]
     Route: 065
     Dates: end: 20110101

REACTIONS (1)
  - DRUG EXPOSURE DURING PREGNANCY [None]
